FAERS Safety Report 6306071-X (Version None)
Quarter: 2009Q3

REPORT INFORMATION
  Report Type: 
  Country: None (occurrence: None)
  Receive Date: 20090812
  Receipt Date: 20090804
  Transmission Date: 20100115
  Serious: Yes (Other)
  Sender: FDA-Public Use
  Company Number: JP-JNJFOC-20090203819

PATIENT
  Age: 37 Year
  Sex: Male

DRUGS (4)
  1. RISPERDAL [Suspect]
     Indication: DRUG USE FOR UNKNOWN INDICATION
     Route: 048
  2. FLUNITRAZEPAM [Concomitant]
     Route: 065
  3. TRIAZOLAM [Concomitant]
     Route: 048
  4. BROTIZOLAM [Concomitant]
     Route: 048

REACTIONS (17)
  - AKATHISIA [None]
  - ALTERED STATE OF CONSCIOUSNESS [None]
  - CONDITION AGGRAVATED [None]
  - DRUG DEPENDENCE [None]
  - DYSARTHRIA [None]
  - DYSGEUSIA [None]
  - DYSKINESIA [None]
  - FALL [None]
  - GAIT DISTURBANCE [None]
  - HYPERCHLORHYDRIA [None]
  - INTESTINAL OBSTRUCTION [None]
  - SOMNOLENCE [None]
  - TEMPOROMANDIBULAR JOINT SYNDROME [None]
  - THIRST [None]
  - URINARY INCONTINENCE [None]
  - VISION BLURRED [None]
  - VOMITING [None]
